FAERS Safety Report 5528093-9 (Version None)
Quarter: 2007Q4

REPORT INFORMATION
  Report Type: 
  Country: None (occurrence: None)
  Receive Date: 20071128
  Receipt Date: 20071114
  Transmission Date: 20080405
  Serious: Yes (Other)
  Sender: FDA-Public Use
  Company Number: GB-RANBAXY-2007RR-11467

PATIENT

DRUGS (2)
  1. TAMSULOSIN HCL [Suspect]
     Dosage: 200 UG, UNK
     Route: 048
     Dates: start: 20071017, end: 20071017
  2. TAMSULOSIN HCL [Suspect]
     Dosage: 400 UG, UNK
     Route: 048

REACTIONS (3)
  - BRADYCARDIA [None]
  - HYPERTENSION [None]
  - LETHARGY [None]
